FAERS Safety Report 9520426 (Version 1)
Quarter: 2013Q3

REPORT INFORMATION
  Report Type: Report from Study
  Country: DE (occurrence: DE)
  Receive Date: 20130912
  Receipt Date: 20130912
  Transmission Date: 20140515
  Serious: No
  Sender: FDA-Public Use
  Company Number: PHHY2013DE097070

PATIENT
  Sex: Female
  Weight: 53 kg

DRUGS (6)
  1. AMN107 [Suspect]
     Indication: CHRONIC MYELOID LEUKAEMIA
     Dosage: 800 MG, PER DAY
     Route: 048
     Dates: start: 20100527
  2. AMN107 [Suspect]
     Dosage: 400 MG, PER DAY
     Route: 048
     Dates: start: 20101026
  3. AMN107 [Suspect]
     Dosage: 200 MG, PER DAY
     Route: 048
     Dates: start: 20101210
  4. AMN107 [Suspect]
     Dosage: 200 MG, PER DAY
     Route: 048
     Dates: start: 20120516
  5. ORTOTON [Concomitant]
     Dosage: UNK
     Dates: start: 20100831, end: 20110517
  6. CITALOPRAM [Concomitant]
     Dosage: UNK
     Dates: start: 20100518

REACTIONS (1)
  - Hyperhidrosis [Recovered/Resolved]
